FAERS Safety Report 4930069-7 (Version None)
Quarter: 2006Q1

REPORT INFORMATION
  Report Type: 
  Country: None (occurrence: None)
  Receive Date: 20060228
  Receipt Date: 20060215
  Transmission Date: 20060701
  Serious: Yes (Other)
  Sender: FDA-Public Use
  Company Number: GBWYE397015FEB06

PATIENT
  Age: 76 Year
  Sex: Male

DRUGS (1)
  1. EFFEXOR XR [Suspect]
     Dosage: 150MG; SEE IMAGE

REACTIONS (1)
  - SUPRAVENTRICULAR EXTRASYSTOLES [None]
